FAERS Safety Report 9474578 (Version 1)
Quarter: 2013Q3

REPORT INFORMATION
  Report Type: Spontaneous
  Country: US (occurrence: US)
  Receive Date: 20130823
  Receipt Date: 20130823
  Transmission Date: 20140515
  Serious: Yes (Hospitalization)
  Sender: FDA-Public Use
  Company Number: US-BRISTOL-MYERS SQUIBB COMPANY-19188564

PATIENT
  Age: 62 Year
  Sex: Male

DRUGS (2)
  1. ABILIFY [Suspect]
     Dosage: NO OF DOSE:1
  2. LITHIUM [Suspect]

REACTIONS (3)
  - Mania [Unknown]
  - Muscle spasms [Unknown]
  - Sleep disorder [Unknown]
